FAERS Safety Report 15347033 (Version 1)
Quarter: 2018Q3

REPORT INFORMATION
  Report Type: Report from Study
  Country: JP (occurrence: JP)
  Receive Date: 20180904
  Receipt Date: 20180904
  Transmission Date: 20181010
  Serious: Yes (Death)
  Sender: FDA-Public Use
  Company Number: JP-UCBSA-2018039099

PATIENT
  Age: 50 Year
  Sex: Female
  Weight: 70 kg

DRUGS (8)
  1. RINDERON V [Concomitant]
     Active Substance: BETAMETHASONE VALERATE
     Route: 048
     Dates: start: 20180327, end: 20180402
  2. LACOSAMIDE. [Suspect]
     Active Substance: LACOSAMIDE
     Indication: FOCAL DYSCOGNITIVE SEIZURES
     Dosage: 25 MG, 2X/DAY (BID)
     Route: 048
     Dates: start: 20180506, end: 20180514
  3. E KEPPRA [Concomitant]
     Active Substance: LEVETIRACETAM
     Indication: FOCAL DYSCOGNITIVE SEIZURES
     Dosage: 1000 MG, UNK
     Route: 048
     Dates: start: 20180506, end: 20180709
  4. RINDERON V [Concomitant]
     Active Substance: BETAMETHASONE VALERATE
     Route: 048
     Dates: start: 20180402, end: 20180409
  5. LACOSAMIDE. [Suspect]
     Active Substance: LACOSAMIDE
     Indication: EPILEPSY
     Dosage: 50 MG, 2X/DAY (BID)
     Route: 048
     Dates: start: 20180515, end: 20180709
  6. RINDERON V [Concomitant]
     Active Substance: BETAMETHASONE VALERATE
     Indication: BRAIN OEDEMA
     Route: 048
     Dates: start: 20180227, end: 20180327
  7. RINDERON V [Concomitant]
     Active Substance: BETAMETHASONE VALERATE
     Route: 048
     Dates: start: 20180409, end: 20180508
  8. RINDERON V [Concomitant]
     Active Substance: BETAMETHASONE VALERATE
     Route: 048
     Dates: start: 20180508, end: 20180709

REACTIONS (3)
  - Rectal cancer [Fatal]
  - Metastases to lung [Fatal]
  - Respiratory failure [Fatal]

NARRATIVE: CASE EVENT DATE: 20180630
